FAERS Safety Report 6417804-6 (Version None)
Quarter: 2009Q4

REPORT INFORMATION
  Report Type: 
  Country: None (occurrence: None)
  Receive Date: 20091027
  Receipt Date: 20091027
  Transmission Date: 20100525
  Serious: Yes (Life-Threatening)
  Sender: FDA-Public Use
  Company Number: None

PATIENT
  Age: 62 Year
  Sex: Male
  Weight: 152.8 kg

DRUGS (11)
  1. INSULIN GLARGINE [Suspect]
     Indication: DIABETES MELLITUS
     Dosage: 45 UNITS SQ QAM
     Route: 058
     Dates: start: 20090914, end: 20090916
  2. INSULIN GLARGINE [Suspect]
     Indication: DIABETES MELLITUS
     Dosage: 55 UNITS SQ QHS
     Route: 058
     Dates: start: 20090914, end: 20090916
  3. ACYCLOVIR [Concomitant]
  4. FLUCONAZOLE [Concomitant]
  5. LANSOPRAZOLE [Concomitant]
  6. LORATADINE [Concomitant]
  7. OXYCODONE HCL EXTENDED-RELEASE [Concomitant]
  8. VALSARTIN [Concomitant]
  9. VENLAFAXINE [Concomitant]
  10. HYDROXY PROPYL [Concomitant]
  11. METHYLCELLULOSE [Concomitant]

REACTIONS (4)
  - BLOOD GLUCOSE DECREASED [None]
  - BODY TEMPERATURE DECREASED [None]
  - DIZZINESS [None]
  - HYPERHIDROSIS [None]
